FAERS Safety Report 6712600-4 (Version None)
Quarter: 2010Q2

REPORT INFORMATION
  Report Type: 
  Country: None (occurrence: None)
  Receive Date: 20100505
  Receipt Date: 20100505
  Transmission Date: 20101027
  Serious: Yes (Hospitalization, Disabling)
  Sender: FDA-Public Use
  Company Number: None

PATIENT
  Age: 67 Year
  Sex: Female
  Weight: 67.586 kg

DRUGS (9)
  1. LEVAQUIN [Suspect]
     Indication: SEPSIS
     Dosage: 750 MG 1 DAILY PO
     Route: 048
     Dates: start: 20100311, end: 20100314
  2. CELLCEPT [Concomitant]
  3. PREDNISONE [Concomitant]
  4. CYCLOSPORINE [Concomitant]
  5. PAXIL [Concomitant]
  6. METFORMIN HYDROCHLORIDE [Concomitant]
  7. COZAAR [Concomitant]
  8. SIMVASTATIN [Concomitant]
  9. CLONIDINE [Concomitant]

REACTIONS (3)
  - IMPAIRED DRIVING ABILITY [None]
  - PAIN IN EXTREMITY [None]
  - TENDON PAIN [None]
